APPROVED DRUG PRODUCT: SORBITRATE
Active Ingredient: ISOSORBIDE DINITRATE
Strength: 20MG
Dosage Form/Route: TABLET;ORAL
Application: A086405 | Product #002
Applicant: ASTRAZENECA PHARMACEUTICALS LP
Approved: Aug 21, 1990 | RLD: No | RS: No | Type: DISCN